FAERS Safety Report 12842845 (Version 3)
Quarter: 2017Q1

REPORT INFORMATION
  Report Type: Spontaneous
  Country: US (occurrence: US)
  Receive Date: 20161013
  Receipt Date: 20170112
  Transmission Date: 20170428
  Serious: No
  Sender: FDA-Public Use
  Company Number: US-PFIZER INC-2016476577

PATIENT
  Age: 76 Year
  Sex: Female

DRUGS (3)
  1. LATANOPROST. [Suspect]
     Active Substance: LATANOPROST
     Indication: INTRAOCULAR PRESSURE INCREASED
     Dosage: UNK, 1X/DAY (ONE DROP EACH EYE AT BEDTIME)
     Route: 047
     Dates: start: 2014
  2. LATANOPROST. [Suspect]
     Active Substance: LATANOPROST
     Indication: GLAUCOMA
     Dosage: 2 GTT, 1X/DAY (1 DROP AT BEDTIME IN BOTH EYES )
     Route: 047
     Dates: start: 201612
  3. LATANOPROST. [Suspect]
     Active Substance: LATANOPROST
     Indication: OPEN ANGLE GLAUCOMA

REACTIONS (2)
  - Product quality issue [Unknown]
  - Drug ineffective [Recovering/Resolving]

NARRATIVE: CASE EVENT DATE: 2014
